FAERS Safety Report 14898765 (Version 4)
Quarter: 2019Q1

REPORT INFORMATION
  Report Type: Spontaneous
  Country: US (occurrence: US)
  Receive Date: 20180515
  Receipt Date: 20190227
  Transmission Date: 20190417
  Serious: Yes (Hospitalization, Other)
  Sender: FDA-Public Use
  Company Number: US-SA-2018SA133315

PATIENT
  Sex: Female

DRUGS (11)
  1. METHOTREXATE. [Suspect]
     Active Substance: METHOTREXATE
     Dosage: 17.5 MG,QW
     Route: 048
     Dates: start: 200212, end: 200212
  2. METHOTREXATE. [Suspect]
     Active Substance: METHOTREXATE
     Dosage: 17.5 MG,QW
     Route: 048
     Dates: start: 201110, end: 201110
  3. METHOTREXATE. [Suspect]
     Active Substance: METHOTREXATE
     Dosage: 17.5 MG,QW
     Route: 048
     Dates: start: 200409, end: 200409
  4. ENBREL [Suspect]
     Active Substance: ETANERCEPT
     Indication: RHEUMATOID ARTHRITIS
     Dosage: 50 MG,QW
     Route: 065
     Dates: start: 2011, end: 201712
  5. HUMIRA [Suspect]
     Active Substance: ADALIMUMAB
     Indication: PRODUCT USED FOR UNKNOWN INDICATION
     Dosage: 40 MG,QOW
     Route: 058
     Dates: start: 201108, end: 201508
  6. XELJANZ [Concomitant]
     Active Substance: TOFACITINIB CITRATE
     Indication: RHEUMATOID ARTHRITIS
     Dosage: 5 MG, BID
     Route: 048
     Dates: start: 20180309
  7. DOXYCYCLINE. [Suspect]
     Active Substance: DOXYCYCLINE
     Dosage: UNK UNK,UNK
     Route: 065
     Dates: start: 1996, end: 200211
  8. CYCLOSPORIN [Suspect]
     Active Substance: CYCLOSPORINE
     Indication: PRODUCT USED FOR UNKNOWN INDICATION
     Dosage: UNK UNK,UNK
     Route: 065
     Dates: start: 1996, end: 200211
  9. REMICADE [Suspect]
     Active Substance: INFLIXIMAB
     Indication: PRODUCT USED FOR UNKNOWN INDICATION
     Dosage: 300 MG,UNK
     Route: 042
     Dates: start: 200406, end: 200406
  10. PLAQUENIL [Suspect]
     Active Substance: HYDROXYCHLOROQUINE SULFATE
     Dosage: UNK UNK,UNK
     Route: 048
     Dates: start: 1996
  11. ARAVA [Suspect]
     Active Substance: LEFLUNOMIDE
     Indication: PRODUCT USED FOR UNKNOWN INDICATION
     Dosage: UNK UNK,UNK
     Route: 048
     Dates: start: 1996, end: 200211

REACTIONS (11)
  - Hepatic enzyme increased [Unknown]
  - Toothache [Unknown]
  - Skin lesion [Unknown]
  - Ulcer haemorrhage [Recovered/Resolved]
  - Condition aggravated [Unknown]
  - Drug effect decreased [Unknown]
  - Arthralgia [Unknown]
  - Tongue oedema [Unknown]
  - Rash [Unknown]
  - Abdominal discomfort [Unknown]
  - Drug ineffective [Unknown]
